FAERS Safety Report 23148200 (Version 1)
Quarter: 2023Q4

REPORT INFORMATION
  Report Type: Spontaneous
  Country: US (occurrence: None)
  Receive Date: 20231106
  Receipt Date: 20231106
  Transmission Date: 20240110
  Serious: Yes (Hospitalization, Other)
  Sender: FDA-Public Use
  Company Number: US-Unichem Pharmaceuticals (USA) Inc-UCM202310-001331

PATIENT
  Age: 71 Year
  Sex: Male

DRUGS (9)
  1. QUETIAPINE [Suspect]
     Active Substance: QUETIAPINE
     Indication: Dementia with Lewy bodies
  2. QUETIAPINE [Suspect]
     Active Substance: QUETIAPINE
     Dosage: INCREASING DOSES (UNKNOWN)
  3. QUETIAPINE [Suspect]
     Active Substance: QUETIAPINE
     Dosage: TITRATED DOWN (UNKNOWN)
  4. QUETIAPINE [Suspect]
     Active Substance: QUETIAPINE
  5. PRAZOSIN [Concomitant]
     Active Substance: PRAZOSIN
     Indication: Sleep terror
  6. MELATONIN [Concomitant]
     Active Substance: MELATONIN
     Indication: Post-traumatic stress disorder
     Dosage: UNKNOWN
  7. RIVASTIGMINE [Concomitant]
     Active Substance: RIVASTIGMINE
     Indication: Dementia with Lewy bodies
  8. RIVASTIGMINE [Concomitant]
     Active Substance: RIVASTIGMINE
  9. ESCITALOPRAM [Concomitant]
     Active Substance: ESCITALOPRAM OXALATE
     Indication: Dementia with Lewy bodies

REACTIONS (4)
  - Acute psychosis [Recovering/Resolving]
  - Condition aggravated [Recovering/Resolving]
  - Somnolence [Recovered/Resolved]
  - Drug ineffective [Unknown]
